FAERS Safety Report 8283914-4 (Version None)
Quarter: 2012Q2

REPORT INFORMATION
  Report Type: 
  Country: None (occurrence: None)
  Receive Date: 20120413
  Receipt Date: 20120405
  Transmission Date: 20120825
  Serious: No
  Sender: FDA-Public Use
  Company Number: US-BAYER-2012-033971

PATIENT
  Age: 70 Year
  Sex: Female
  Weight: 99 kg

DRUGS (5)
  1. XANAX [Concomitant]
  2. ALEVE (CAPLET) [Suspect]
     Dosage: 220 MG, BID
     Route: 048
     Dates: start: 20120301, end: 20120404
  3. DOXEPIN HCL [Concomitant]
  4. ENALAPRIL MALEATE [Concomitant]
  5. CELEXA [Concomitant]

REACTIONS (6)
  - NERVOUSNESS [None]
  - URTICARIA [None]
  - ABDOMINAL DISCOMFORT [None]
  - LIP BLISTER [None]
  - SKIN DISCOLOURATION [None]
  - NO ADVERSE EVENT [None]
